FAERS Safety Report 20868614 (Version 1)
Quarter: 2022Q2

REPORT INFORMATION
  Report Type: Spontaneous
  Country: US (occurrence: US)
  Receive Date: 20220524
  Receipt Date: 20220524
  Transmission Date: 20220720
  Serious: Yes (Death)
  Sender: FDA-Public Use
  Company Number: US-GENERICUS, INC.-2022GNR00008

PATIENT
  Sex: Male
  Weight: 30.839 kg

DRUGS (1)
  1. TOBRAMYCIN [Suspect]
     Active Substance: TOBRAMYCIN
     Indication: Pseudomonas infection
     Dosage: 300 MG/5 ML (1 VIAL) VIA NEBULIZER, 2X/DAY FOR 14 DAYS ON AND 14 DAYS OFF
     Dates: start: 202202, end: 202203

REACTIONS (2)
  - Death [Fatal]
  - Off label use [Recovered/Resolved]

NARRATIVE: CASE EVENT DATE: 20220101
